FAERS Safety Report 24412345 (Version 2)
Quarter: 2024Q4

REPORT INFORMATION
  Report Type: Report from Study
  Country: AU (occurrence: AU)
  Receive Date: 20241008
  Receipt Date: 20241126
  Transmission Date: 20250115
  Serious: Yes (Other)
  Sender: NOVARTIS
  Company Number: AU-002147023-NVSC2024AU192349

PATIENT
  Sex: Female

DRUGS (9)
  1. FEMARA [Suspect]
     Active Substance: LETROZOLE
     Indication: Breast cancer metastatic
     Dosage: 2.5 MG, CYCLIC (ON D1-21 IN A 28D CYCLE)
     Route: 048
  2. FEMARA [Suspect]
     Active Substance: LETROZOLE
     Indication: HER2 gene amplification
  3. FEMARA [Suspect]
     Active Substance: LETROZOLE
     Indication: Hormone receptor positive breast cancer
  4. PALBOCICLIB [Suspect]
     Active Substance: PALBOCICLIB
     Indication: Hormone receptor positive breast cancer
     Dosage: 100 MG, CYCLIC (ON D1-21 IN A 28D CYCLE)
     Route: 048
  5. PALBOCICLIB [Suspect]
     Active Substance: PALBOCICLIB
     Indication: HER2 gene amplification
  6. PALBOCICLIB [Suspect]
     Active Substance: PALBOCICLIB
     Indication: Breast cancer metastatic
  7. VENETOCLAX [Suspect]
     Active Substance: VENETOCLAX
     Indication: Hormone receptor positive breast cancer
     Dosage: 100 MG, CYCLIC ON D1-21 IN A 28D CYCLE)(CYCLE)
     Route: 065
  8. VENETOCLAX [Suspect]
     Active Substance: VENETOCLAX
     Indication: HER2 gene amplification
  9. VENETOCLAX [Suspect]
     Active Substance: VENETOCLAX
     Indication: Breast cancer metastatic

REACTIONS (1)
  - Neutropenia [Not Recovered/Not Resolved]
